FAERS Safety Report 9334681 (Version 1)
Quarter: 2013Q2

REPORT INFORMATION
  Report Type: Spontaneous
  Country: US (occurrence: US)
  Receive Date: 20130606
  Receipt Date: 20130606
  Transmission Date: 20140414
  Serious: Yes (Other)
  Sender: FDA-Public Use
  Company Number: US-AMGEN-USASP2013011331

PATIENT
  Age: 56 Year
  Sex: Male
  Weight: 77.1 kg

DRUGS (1)
  1. XGEVA [Suspect]
     Indication: NEOPLASM
     Dosage: 120 MG, QMO
     Route: 058
     Dates: start: 20130215

REACTIONS (1)
  - Hypophosphataemia [Not Recovered/Not Resolved]
